FAERS Safety Report 6969549-1 (Version None)
Quarter: 2010Q3

REPORT INFORMATION
  Report Type: 
  Country: None (occurrence: None)
  Receive Date: 20100907
  Receipt Date: 20100907
  Transmission Date: 20110219
  Serious: Yes (Other)
  Sender: FDA-Public Use
  Company Number: None

PATIENT
  Age: 58 Year
  Sex: Female
  Weight: 89.3586 kg

DRUGS (1)
  1. NUBIGIL -ARMODAFINIL--TABL 205MG CEPHALON, INC [Suspect]
     Indication: FATIGUE
     Dosage: 125MG 2 PO
     Route: 048
     Dates: start: 20100904, end: 20100905

REACTIONS (16)
  - AGITATION [None]
  - CRYING [None]
  - DIZZINESS [None]
  - DYSPHAGIA [None]
  - DYSPNOEA [None]
  - EUPHORIC MOOD [None]
  - HEADACHE [None]
  - HYPERSENSITIVITY [None]
  - MOOD SWINGS [None]
  - NAUSEA [None]
  - OROPHARYNGEAL PAIN [None]
  - PALPITATIONS [None]
  - PANIC REACTION [None]
  - TACHYPHRENIA [None]
  - THROAT TIGHTNESS [None]
  - TREMOR [None]
